FAERS Safety Report 21264944 (Version 3)
Quarter: 2023Q1

REPORT INFORMATION
  Report Type: Report from Study
  Country: US (occurrence: US)
  Receive Date: 20220829
  Receipt Date: 20230220
  Transmission Date: 20230418
  Serious: No
  Sender: FDA-Public Use
  Company Number: US-NOVARTISTESTPH-NVSC2022US188633

PATIENT
  Sex: Female

DRUGS (1)
  1. KESIMPTA [Suspect]
     Active Substance: OFATUMUMAB
     Indication: Multiple sclerosis
     Dosage: 20 MG, QMO INJECT 20 MG INTO THE SKIN EVERY 30 DAYS STARTING AT WEEK 4 (AFTER LOADING DOSE COMPLETE)
     Route: 058

REACTIONS (1)
  - Off label use [Unknown]
